FAERS Safety Report 18443958 (Version 5)
Quarter: 2021Q1

REPORT INFORMATION
  Report Type: Spontaneous
  Country: JP (occurrence: JP)
  Receive Date: 20201030
  Receipt Date: 20210217
  Transmission Date: 20210419
  Serious: Yes (Death, Other)
  Sender: FDA-Public Use
  Company Number: JP-BRISTOL-MYERS SQUIBB COMPANY-BMS-2020-089438

PATIENT
  Age: 7 Decade

DRUGS (2)
  1. OPDIVO [Suspect]
     Active Substance: NIVOLUMAB
     Indication: RENAL CELL CARCINOMA
     Dosage: UNK
     Route: 041
     Dates: start: 20201019
  2. YERVOY [Suspect]
     Active Substance: IPILIMUMAB
     Indication: RENAL CELL CARCINOMA
     Dosage: UNAVAILABLE
     Route: 041
     Dates: start: 20201019

REACTIONS (4)
  - Melaena [Recovering/Resolving]
  - Anaemia [Unknown]
  - Diarrhoea [Not Recovered/Not Resolved]
  - Malignant neoplasm progression [Fatal]
